FAERS Safety Report 20198721 (Version 1)
Quarter: 2021Q4

REPORT INFORMATION
  Report Type: Spontaneous
  Country: US (occurrence: None)
  Receive Date: 20211216
  Receipt Date: 20211216
  Transmission Date: 20220303
  Serious: No
  Sender: FDA-Public Use
  Company Number: None

PATIENT
  Sex: Female

DRUGS (2)
  1. CAPECITABINE [Suspect]
     Active Substance: CAPECITABINE
     Indication: Breast cancer
     Dosage: DOSE OR AMOUNT: 1500MG AM 2000MG PM
     Route: 048
     Dates: start: 20210903
  2. CAPECITABINE [Suspect]
     Active Substance: CAPECITABINE
     Dosage: OTHER FREQUENCY : 1500MG AM 2000 PM;?
     Route: 048

REACTIONS (4)
  - Hypotension [None]
  - Skin irritation [None]
  - Skin ulcer [None]
  - Fungal infection [None]
